FAERS Safety Report 8616459-X (Version None)
Quarter: 2012Q3

REPORT INFORMATION
  Report Type: 
  Country: None (occurrence: None)
  Receive Date: 20120823
  Receipt Date: 20120809
  Transmission Date: 20120928
  Serious: Yes (Hospitalization, Other)
  Sender: FDA-Public Use
  Company Number: JP-VERTEX PHARMACEUTICAL INC.-AE-2012-011252

PATIENT
  Age: 58 Year
  Sex: Male

DRUGS (4)
  1. VX-950 [Suspect]
     Dosage: 2250 MG, QD
     Route: 048
     Dates: start: 20120718
  2. VX-950 [Suspect]
     Dosage: 1500 MG, QD
     Route: 048
     Dates: start: 20120802
  3. PEG-INTRON [Concomitant]
     Route: 058
     Dates: start: 20120618, end: 20120802
  4. REBETOL [Concomitant]
     Dosage: 800 MG, QD
     Route: 048
     Dates: start: 20120618, end: 20120802

REACTIONS (11)
  - HEPATIC FUNCTION ABNORMAL [None]
  - BLOOD PRESSURE DECREASED [None]
  - DIZZINESS [None]
  - EYE DISCHARGE [None]
  - OROPHARYNGEAL PAIN [None]
  - EYELID DISORDER [None]
  - RETINOPATHY [None]
  - BLISTER [None]
  - EYELID OEDEMA [None]
  - ERYTHEMA [None]
  - HAEMATOCHEZIA [None]
